FAERS Safety Report 13704746 (Version 1)
Quarter: 2017Q2

REPORT INFORMATION
  Report Type: Spontaneous
  Country: JP (occurrence: JP)
  Receive Date: 20170630
  Receipt Date: 20170630
  Transmission Date: 20170830
  Serious: Yes (Other)
  Sender: FDA-Public Use
  Company Number: JP-TAKEDA-2017TJP013372

PATIENT
  Age: 67 Year
  Sex: Male

DRUGS (6)
  1. AMLODIPINE                         /00972402/ [Concomitant]
     Active Substance: AMLODIPINE BESYLATE
     Dosage: UNK
     Route: 048
  2. AMARYL [Concomitant]
     Active Substance: GLIMEPIRIDE
     Dosage: UNK
     Route: 048
  3. NESINA [Suspect]
     Active Substance: ALOGLIPTIN BENZOATE
     Indication: TYPE 2 DIABETES MELLITUS
     Dosage: 12.5 MG, UNK
     Route: 048
     Dates: start: 20130322, end: 20161103
  4. NESINA [Suspect]
     Active Substance: ALOGLIPTIN BENZOATE
     Dosage: 25 MG, UNK
     Route: 048
     Dates: start: 20161104, end: 20170610
  5. ZYLORIC [Concomitant]
     Active Substance: ALLOPURINOL
     Dosage: UNK
     Route: 048
  6. MEVALOTIN [Concomitant]
     Active Substance: PRAVASTATIN SODIUM
     Dosage: UNK
     Route: 048

REACTIONS (2)
  - Amylase increased [Recovered/Resolved]
  - Glycosylated haemoglobin increased [Unknown]

NARRATIVE: CASE EVENT DATE: 20161104
